FAERS Safety Report 9415640 (Version 1)
Quarter: 2013Q3

REPORT INFORMATION
  Report Type: Spontaneous
  Country: US (occurrence: US)
  Receive Date: 20130723
  Receipt Date: 20130723
  Transmission Date: 20140515
  Serious: Yes (Death, Other)
  Sender: FDA-Public Use
  Company Number: US-CELGENEUS-163-CCAZA-12053405

PATIENT
  Sex: 0

DRUGS (4)
  1. AZACITIDINE INJECTABLE [Suspect]
     Indication: ACUTE MYELOID LEUKAEMIA
     Dosage: 75 MILLIGRAM/SQ. METER
     Route: 041
  2. AZACITIDINE INJECTABLE [Suspect]
     Dosage: 75 MILLIGRAM/SQ. METER
     Route: 058
  3. SORAFENIB [Suspect]
     Indication: ACUTE MYELOID LEUKAEMIA
     Dosage: 400 MILLIGRAM
     Route: 048
  4. SORAFENIB [Suspect]
     Dosage: 800 MILLIGRAM
     Route: 048

REACTIONS (30)
  - Infection [Fatal]
  - Pleural effusion [Unknown]
  - Hyperbilirubinaemia [Unknown]
  - Aspartate aminotransferase increased [Unknown]
  - Alanine aminotransferase increased [Unknown]
  - Hyperuricaemia [Unknown]
  - Palmar-plantar erythrodysaesthesia syndrome [Unknown]
  - Decreased appetite [Unknown]
  - Bone marrow failure [Unknown]
  - Rash [Unknown]
  - Fatigue [Unknown]
  - Thrombocytopenia [Unknown]
  - Neutropenia [Unknown]
  - Anaemia [Unknown]
  - Febrile neutropenia [Unknown]
  - Dyspnoea [Unknown]
  - Weight decreased [Unknown]
  - Vomiting [Unknown]
  - Neutropenic infection [Unknown]
  - Blood creatinine increased [Unknown]
  - Gastrointestinal toxicity [Unknown]
  - Colitis [Unknown]
  - Dysphagia [Unknown]
  - Pain [Unknown]
  - Confusional state [Unknown]
  - Nausea [Unknown]
  - Diarrhoea [Unknown]
  - Constipation [Unknown]
  - Pruritus [Unknown]
  - Hypertension [Unknown]
